FAERS Safety Report 9220975 (Version 1)
Quarter: 2013Q2

REPORT INFORMATION
  Report Type: Spontaneous
  Country: BR (occurrence: BR)
  Receive Date: 20130409
  Receipt Date: 20130409
  Transmission Date: 20140414
  Serious: Yes (Other)
  Sender: FDA-Public Use
  Company Number: PHHY2013BR033918

PATIENT
  Sex: Male

DRUGS (2)
  1. METFORMIN [Suspect]
     Indication: DIABETES MELLITUS
     Dosage: 850 MG, UNK
     Route: 048
  2. GALVUS [Concomitant]
     Dosage: 50 MG, UNK

REACTIONS (1)
  - Liver disorder [Unknown]
